FAERS Safety Report 11197764 (Version 1)
Quarter: 2015Q2

REPORT INFORMATION
  Report Type: Spontaneous
  Country: FR (occurrence: FR)
  Receive Date: 20150617
  Receipt Date: 20150617
  Transmission Date: 20150821
  Serious: Yes (Other)
  Sender: FDA-Public Use
  Company Number: FR-BAXTER-2015BAX030961

PATIENT
  Age: 67 Year
  Sex: Male

DRUGS (14)
  1. ENDOXAN 1000 MG, POUDRE POUR SOLUTION INJECTABLE [Suspect]
     Active Substance: CYCLOPHOSPHAMIDE
     Indication: PRODUCT USED FOR UNKNOWN INDICATION
     Dosage: D1
     Route: 042
     Dates: start: 20070413, end: 20070413
  2. MEDROL [Suspect]
     Active Substance: METHYLPREDNISOLONE
     Indication: PRODUCT USED FOR UNKNOWN INDICATION
     Dosage: D1-D5
     Route: 048
     Dates: start: 20070413
  3. ENDOXAN 1000 MG, POUDRE POUR SOLUTION INJECTABLE [Suspect]
     Active Substance: CYCLOPHOSPHAMIDE
     Dosage: D1
     Route: 065
     Dates: start: 20070613
  4. VINCRISTINE TEVA [Suspect]
     Active Substance: VINCRISTINE
     Indication: PRODUCT USED FOR UNKNOWN INDICATION
     Dosage: D1
     Route: 042
     Dates: start: 20070413
  5. VINCRISTINE TEVA [Suspect]
     Active Substance: VINCRISTINE
     Dosage: D1
     Route: 065
     Dates: start: 20070613
  6. CARDIOXANE [Suspect]
     Active Substance: DEXRAZOXANE HYDROCHLORIDE
     Indication: PRODUCT USED FOR UNKNOWN INDICATION
     Route: 065
     Dates: start: 20070413
  7. MABTHERA [Suspect]
     Active Substance: RITUXIMAB
     Dosage: D1
     Route: 065
     Dates: start: 20070613
  8. TRIFLUCAN [Suspect]
     Active Substance: FLUCONAZOLE
     Indication: PRODUCT USED FOR UNKNOWN INDICATION
     Dosage: FOR 10 WEEKS
     Route: 048
     Dates: start: 20070612
  9. CARDIOXANE [Suspect]
     Active Substance: DEXRAZOXANE HYDROCHLORIDE
     Route: 065
     Dates: start: 20070613
  10. MEDROL [Suspect]
     Active Substance: METHYLPREDNISOLONE
     Dosage: D1-D5
     Route: 065
  11. TRIFLUCAN [Suspect]
     Active Substance: FLUCONAZOLE
     Route: 048
     Dates: start: 20070521
  12. MABTHERA [Suspect]
     Active Substance: RITUXIMAB
     Indication: PRODUCT USED FOR UNKNOWN INDICATION
     Dosage: D1
     Route: 042
     Dates: start: 20070413
  13. DOXORUBICIN TEVA [Suspect]
     Active Substance: DOXORUBICIN
     Indication: PRODUCT USED FOR UNKNOWN INDICATION
     Dosage: D1
     Route: 042
     Dates: start: 20070413
  14. DOXORUBICIN TEVA [Suspect]
     Active Substance: DOXORUBICIN
     Dosage: D1
     Route: 065

REACTIONS (6)
  - Thrombocytopenia [Recovered/Resolved]
  - Lymphadenopathy [Unknown]
  - Anaemia [Recovered/Resolved]
  - Leukopenia [Recovered/Resolved]
  - Meningitis cryptococcal [Unknown]
  - Febrile bone marrow aplasia [Unknown]

NARRATIVE: CASE EVENT DATE: 20070706
